FAERS Safety Report 20899081 (Version 1)
Quarter: 2022Q2

REPORT INFORMATION
  Report Type: Spontaneous
  Country: HU (occurrence: HU)
  Receive Date: 20220601
  Receipt Date: 20220601
  Transmission Date: 20220721
  Serious: Yes (Hospitalization, Other)
  Sender: FDA-Public Use
  Company Number: HU-SCIEGENP-2022SCLIT00411

PATIENT
  Age: 70 Year
  Sex: Female

DRUGS (3)
  1. METFORMIN HYDROCHLORIDE [Suspect]
     Active Substance: METFORMIN HYDROCHLORIDE
     Indication: Squamous cell carcinoma of skin
     Route: 065
     Dates: start: 201705, end: 201906
  2. METFORMIN HYDROCHLORIDE [Suspect]
     Active Substance: METFORMIN HYDROCHLORIDE
     Route: 065
     Dates: start: 201907
  3. TRAMETINIB [Suspect]
     Active Substance: TRAMETINIB
     Indication: Squamous cell carcinoma of skin
     Route: 065
     Dates: start: 201810, end: 201906

REACTIONS (5)
  - Myasthenia gravis [Unknown]
  - Sepsis [Unknown]
  - Dermatitis [Recovered/Resolved]
  - Rash [Recovered/Resolved]
  - Off label use [Unknown]

NARRATIVE: CASE EVENT DATE: 20170501
